FAERS Safety Report 4455967-2 (Version None)
Quarter: 2004Q3

REPORT INFORMATION
  Report Type: 
  Country: None (occurrence: None)
  Receive Date: 20040922
  Receipt Date: 20040907
  Transmission Date: 20050211
  Serious: Yes (Other)
  Sender: FDA-Public Use
  Company Number: US-GLAXOSMITHKLINE-A0526623A

PATIENT
  Sex: Male

DRUGS (1)
  1. PAXIL [Suspect]
     Indication: STRESS SYMPTOMS
     Route: 048
     Dates: start: 20031101

REACTIONS (11)
  - AGGRESSION [None]
  - AMNESIA [None]
  - ANOREXIA [None]
  - DEPENDENCE [None]
  - DRUG DEPENDENCE [None]
  - DRUG WITHDRAWAL SYNDROME [None]
  - GASTRIC DISORDER [None]
  - HALLUCINATION [None]
  - PARAESTHESIA [None]
  - PARANOIA [None]
  - SEXUAL DYSFUNCTION [None]
